FAERS Safety Report 23243148 (Version 1)
Quarter: 2023Q4

REPORT INFORMATION
  Report Type: Report from Study
  Country: US (occurrence: US)
  Receive Date: 20231130
  Receipt Date: 20231130
  Transmission Date: 20240110
  Serious: Yes (Other)
  Sender: FDA-Public Use
  Company Number: US-ALXN-A202102642AA

PATIENT
  Sex: Male
  Weight: 112.7 kg

DRUGS (3)
  1. STRENSIQ [Suspect]
     Active Substance: ASFOTASE ALFA
     Indication: Hypophosphatasia
     Dosage: UNK
     Route: 065
  2. STRENSIQ [Suspect]
     Active Substance: ASFOTASE ALFA
     Dosage: 1.6ML OF THE 80MG VIALS (2 VIALS)
     Route: 065
  3. STRENSIQ [Suspect]
     Active Substance: ASFOTASE ALFA
     Dosage: 1.6ML OF THE 80MG VIALS (2 VIALS)
     Route: 065

REACTIONS (5)
  - Spinal fracture [Unknown]
  - Panniculitis [Unknown]
  - Weight increased [Unknown]
  - Pain [Not Recovered/Not Resolved]
  - Injection site atrophy [Unknown]

NARRATIVE: CASE EVENT DATE: 20200101
